FAERS Safety Report 5805388-2 (Version None)
Quarter: 2008Q3

REPORT INFORMATION
  Report Type: 
  Country: None (occurrence: None)
  Receive Date: 20080710
  Receipt Date: 20080708
  Transmission Date: 20090109
  Serious: Yes (Hospitalization)
  Sender: FDA-Public Use
  Company Number: FR-BRISTOL-MYERS SQUIBB COMPANY-14252902

PATIENT
  Age: 60 Year
  Sex: Female

DRUGS (8)
  1. BLEOMYCIN SULFATE [Suspect]
     Indication: NON-HODGKIN'S LYMPHOMA
     Dosage: 27APR07-02AUG07.TDD:120MG.  RECEIVED EIGHT COURSES AT 02-AUG-2007
     Route: 042
     Dates: start: 20070427, end: 20070802
  2. DOXORUBICIN HCL [Suspect]
     Indication: NON-HODGKIN'S LYMPHOMA
     Dosage: 27APR07-16AUG07.
     Route: 042
     Dates: start: 20070427, end: 20070816
  3. DETICENE [Suspect]
     Indication: NON-HODGKIN'S LYMPHOMA
     Dosage: 27APR07-16AUG07. EIGHT COURSES TILL 02-AUG-2007
     Route: 042
     Dates: start: 20070427, end: 20070816
  4. VELBE [Suspect]
     Indication: NON-HODGKIN'S LYMPHOMA
     Dosage: 27APR07-16AUG07.
     Route: 042
     Dates: start: 20070427, end: 20070816
  5. PLAVIX [Concomitant]
     Route: 048
  6. SOTALOL HCL [Concomitant]
     Route: 048
  7. XANAX [Concomitant]
     Route: 048
  8. AMITRIPTYLINE HYDROCHLORIDE [Concomitant]
     Route: 048

REACTIONS (1)
  - PULMONARY FIBROSIS [None]
